FAERS Safety Report 14031094 (Version 5)
Quarter: 2018Q4

REPORT INFORMATION
  Report Type: Spontaneous
  Country: BE (occurrence: BE)
  Receive Date: 20171002
  Receipt Date: 20181217
  Transmission Date: 20190204
  Serious: Yes (Other)
  Sender: FDA-Public Use
  Company Number: BE-SA-2017SA176299

PATIENT
  Age: 19 Year
  Sex: Female

DRUGS (3)
  1. LEMTRADA [Suspect]
     Active Substance: ALEMTUZUMAB
     Dosage: UNK
     Route: 041
     Dates: start: 20181207, end: 20181209
  2. LEMTRADA [Suspect]
     Active Substance: ALEMTUZUMAB
     Indication: MULTIPLE SCLEROSIS
     Dosage: UNK, UNK
     Route: 041
     Dates: start: 20161110
  3. LEMTRADA [Suspect]
     Active Substance: ALEMTUZUMAB
     Dosage: UNK, UNK
     Route: 041
     Dates: start: 20171016, end: 20171018

REACTIONS (19)
  - Sensory disturbance [Not Recovered/Not Resolved]
  - Glucose urine present [Not Recovered/Not Resolved]
  - Multiple sclerosis relapse [Not Recovered/Not Resolved]
  - Tumefactive multiple sclerosis [Unknown]
  - Chromaturia [Recovered/Resolved]
  - Periostitis [Unknown]
  - Nervous system disorder [Unknown]
  - Fatigue [Unknown]
  - Lymphocyte count decreased [Unknown]
  - Blood creatine phosphokinase increased [Recovered/Resolved]
  - Diplopia [Not Recovered/Not Resolved]
  - Rash [Unknown]
  - Blood lactate dehydrogenase increased [Recovered/Resolved]
  - Asthenia [Not Recovered/Not Resolved]
  - Nuclear magnetic resonance imaging abnormal [Not Recovered/Not Resolved]
  - Motor dysfunction [Not Recovered/Not Resolved]
  - Neuromyelitis optica spectrum disorder [Unknown]
  - Blood glucose decreased [Not Recovered/Not Resolved]
  - Nuclear magnetic resonance imaging abnormal [Unknown]

NARRATIVE: CASE EVENT DATE: 2017
